FAERS Safety Report 5524938-7 (Version None)
Quarter: 2007Q4

REPORT INFORMATION
  Report Type: 
  Country: None (occurrence: None)
  Receive Date: 20071119
  Receipt Date: 20071108
  Transmission Date: 20080405
  Serious: Yes (Other)
  Sender: FDA-Public Use
  Company Number: 2007334690

PATIENT
  Age: 60 Year
  Sex: Female

DRUGS (2)
  1. ROGAINE [Suspect]
     Dosage: TOPICAL
     Route: 061
     Dates: start: 20070901
  2. PREDNISON (PREDNISONE) [Concomitant]

REACTIONS (3)
  - EYE INFLAMMATION [None]
  - EYE IRRITATION [None]
  - OCULAR HYPERAEMIA [None]
